FAERS Safety Report 6567658-2 (Version None)
Quarter: 2010Q1

REPORT INFORMATION
  Report Type: 
  Country: None (occurrence: None)
  Receive Date: 20100203
  Receipt Date: 20100126
  Transmission Date: 20100710
  Serious: Yes (Other)
  Sender: FDA-Public Use
  Company Number: US-BIOGENIDEC-2009BI036367

PATIENT
  Age: 55 Year
  Sex: Female

DRUGS (1)
  1. TYSABRI [Suspect]
     Indication: MULTIPLE SCLEROSIS
     Route: 042
     Dates: start: 20090611, end: 20091029

REACTIONS (5)
  - BODY TEMPERATURE INCREASED [None]
  - CYSTITIS [None]
  - DYSPNOEA [None]
  - PYREXIA [None]
  - RASH [None]
